FAERS Safety Report 9857516 (Version 2)
Quarter: 2014Q1

REPORT INFORMATION
  Report Type: Report from Study
  Country: JP (occurrence: JP)
  Receive Date: 20140131
  Receipt Date: 20140213
  Transmission Date: 20141002
  Serious: Yes (Hospitalization)
  Sender: FDA-Public Use
  Company Number: PHHY2014JP010344

PATIENT
  Age: 81 Year
  Sex: Male
  Weight: 45 kg

DRUGS (13)
  1. EQUA [Suspect]
     Indication: TYPE 2 DIABETES MELLITUS
     Dosage: 100 MG, IN TWO DIVIDED DOSES
     Route: 048
     Dates: start: 20130621, end: 20131108
  2. EXELON PATCH [Suspect]
     Indication: DEMENTIA ALZHEIMER^S TYPE
     Dosage: 4.5 MG, UNK
     Route: 062
     Dates: start: 20130726, end: 20130731
  3. EXELON PATCH [Suspect]
     Dosage: 9 MG, UNK
     Route: 062
     Dates: start: 20130801, end: 20130807
  4. EXELON PATCH [Suspect]
     Dosage: 13.5 MG, UNK
     Route: 062
     Dates: start: 20130808, end: 20130814
  5. EXELON PATCH [Suspect]
     Dosage: 18 MG, UNK
     Route: 062
     Dates: start: 20130815
  6. JANUVIA [Concomitant]
     Indication: TYPE 2 DIABETES MELLITUS
     Dosage: 50 MG, UNK
     Route: 048
     Dates: end: 20130621
  7. EPALRESTAT [Concomitant]
     Indication: TYPE 2 DIABETES MELLITUS
     Route: 048
  8. BETAHISTINE MESILATE [Concomitant]
     Indication: DIZZINESS
     Route: 048
  9. VITAMEDIN                          /00274301/ [Concomitant]
     Indication: TYPE 2 DIABETES MELLITUS
     Route: 048
  10. ZOLPIDEM TARTRATE [Concomitant]
     Indication: BENIGN PROSTATIC HYPERPLASIA
     Route: 048
  11. MAGNESIUM OXIDE [Concomitant]
     Indication: CONSTIPATION
     Route: 048
  12. URSODEOXYCHOLIC ACID [Concomitant]
     Indication: CHRONIC HEPATITIS C
     Route: 048
  13. REBAMIPIDE [Concomitant]
     Indication: PROPHYLAXIS
     Route: 048
     Dates: start: 20131023, end: 20131027

REACTIONS (3)
  - Vitreous haemorrhage [Recovering/Resolving]
  - Hepatic cancer metastatic [Recovering/Resolving]
  - Diabetes mellitus inadequate control [Unknown]
